FAERS Safety Report 10478480 (Version 3)
Quarter: 2014Q4

REPORT INFORMATION
  Report Type: Spontaneous
  Country: BR (occurrence: BR)
  Receive Date: 20140926
  Receipt Date: 20141229
  Transmission Date: 20150528
  Serious: Yes (Other)
  Sender: FDA-Public Use
  Company Number: BR-SA-2014SA130673

PATIENT
  Sex: Male
  Weight: 55 kg

DRUGS (9)
  1. ALL OTHER THERAPEUTIC PRODUCTS [Concomitant]
     Active Substance: UNSPECIFIED INGREDIENT
     Indication: HAEMODIALYSIS
     Route: 042
  2. BENICAR [Concomitant]
     Active Substance: OLMESARTAN MEDOXOMIL
     Indication: BLOOD PRESSURE
     Route: 048
  3. APRESOLINE HYDROCHLORIDE [Concomitant]
     Active Substance: HYDRALAZINE HYDROCHLORIDE
     Indication: BLOOD PRESSURE
     Route: 048
  4. FERRIC HYDROXIDE POLYMALTOSE COMPLEX [Concomitant]
     Indication: HAEMODIALYSIS
     Route: 042
  5. CALCITRIOL. [Concomitant]
     Active Substance: CALCITRIOL
     Indication: ASTHENIA
     Route: 048
  6. AMLODIPINE [Concomitant]
     Active Substance: AMLODIPINE BESYLATE
     Indication: BLOOD PRESSURE
     Route: 048
  7. DEVICE NOS [Concomitant]
     Active Substance: DEVICE
     Indication: DEVICE THERAPY
     Dates: start: 2011
  8. ATENSINA [Concomitant]
     Active Substance: CLONIDINE
     Indication: BLOOD PRESSURE
     Route: 048
  9. LANTUS [Suspect]
     Active Substance: INSULIN GLARGINE
     Indication: DIABETES MELLITUS
     Route: 058
     Dates: start: 2011

REACTIONS (3)
  - Upper limb fracture [Recovered/Resolved]
  - Off label use [Unknown]
  - Road traffic accident [Unknown]

NARRATIVE: CASE EVENT DATE: 20140904
